FAERS Safety Report 23182336 (Version 1)
Quarter: 2023Q4

REPORT INFORMATION
  Report Type: Spontaneous
  Country: US (occurrence: None)
  Receive Date: 20231114
  Receipt Date: 20231114
  Transmission Date: 20240109
  Serious: Yes (Hospitalization)
  Sender: FDA-Public Use
  Company Number: None

PATIENT
  Sex: Male
  Weight: 51.4 kg

DRUGS (3)
  1. FLUOROURACIL [Suspect]
     Active Substance: FLUOROURACIL
     Dates: end: 20230906
  2. IRINOTECAN [Suspect]
     Active Substance: IRINOTECAN
     Dosage: OTHER QUANTITY : 68.8 MG;?
     Dates: end: 20230609
  3. LEUCOVORIN CALCIUM [Suspect]
     Active Substance: LEUCOVORIN CALCIUM
     Dates: end: 20230609

REACTIONS (11)
  - Confusional state [None]
  - Urinary incontinence [None]
  - Dizziness [None]
  - Tremor [None]
  - Abdominal pain [None]
  - Diarrhoea [None]
  - Fatigue [None]
  - Nausea [None]
  - Enterocolitis [None]
  - Metastases to liver [None]
  - Disease progression [None]

NARRATIVE: CASE EVENT DATE: 20230619
